FAERS Safety Report 20222616 (Version 2)
Quarter: 2022Q1

REPORT INFORMATION
  Report Type: Spontaneous
  Country: US (occurrence: US)
  Receive Date: 20211223
  Receipt Date: 20220113
  Transmission Date: 20220424
  Serious: Yes (Hospitalization, Other)
  Sender: FDA-Public Use
  Company Number: US-TEVA-2021-US-1989687

PATIENT
  Age: 42 Year
  Sex: Male

DRUGS (1)
  1. ERYTHROMYCIN [Suspect]
     Active Substance: ERYTHROMYCIN
     Indication: Gastrointestinal motility disorder
     Route: 065

REACTIONS (3)
  - Megacolon [Recovered/Resolved]
  - Clostridium difficile colitis [Recovering/Resolving]
  - Renal injury [Unknown]
